FAERS Safety Report 20949429 (Version 2)
Quarter: 2022Q4

REPORT INFORMATION
  Report Type: Report from Study
  Country: CR (occurrence: CR)
  Receive Date: 20220613
  Receipt Date: 20221019
  Transmission Date: 20230112
  Serious: Yes (Other)
  Sender: FDA-Public Use
  Company Number: CR-NOVARTISPH-NVSC2022CR115571

PATIENT
  Age: 66 Year
  Sex: Female

DRUGS (4)
  1. HYDROCHLOROTHIAZIDE\VALSARTAN [Suspect]
     Active Substance: HYDROCHLOROTHIAZIDE\VALSARTAN
     Indication: Hypertension
     Dosage: UNK, (STARTED 7 YEARS AGO AND STOPPED 15 DAYS AGO)
     Route: 065
  2. HYDROCHLOROTHIAZIDE\VALSARTAN [Suspect]
     Active Substance: HYDROCHLOROTHIAZIDE\VALSARTAN
     Dosage: UNK (320/12.5MG)
     Route: 048
     Dates: start: 2015, end: 202204
  3. DIOVAN [Suspect]
     Active Substance: VALSARTAN
     Indication: Hypertension
     Dosage: 2 DOSAGE FORM, QD (STARTED 15 DAYS AGO, ONE TABLET IN THE MORNING AND ONE AT NIGHT)
     Route: 065
  4. DIOVAN [Suspect]
     Active Substance: VALSARTAN
     Dosage: 320 MG, BID (TWICE DAILY / ONE TABLET IN THE MORNING AND ANOTHER AT NIGHT)
     Route: 048
     Dates: start: 202204

REACTIONS (6)
  - Renal disorder [Unknown]
  - COVID-19 [Recovering/Resolving]
  - Ill-defined disorder [Unknown]
  - Incorrect dose administered [Unknown]
  - Therapeutic response unexpected [Unknown]
  - Overdose [Unknown]

NARRATIVE: CASE EVENT DATE: 20220401
